FAERS Safety Report 8021550-5 (Version None)
Quarter: 2011Q4

REPORT INFORMATION
  Report Type: 
  Country: None (occurrence: None)
  Receive Date: 20111230
  Receipt Date: 20111219
  Transmission Date: 20120403
  Serious: Yes (Death, Other)
  Sender: FDA-Public Use
  Company Number: CLOF-1000487

PATIENT
  Age: 69 Year
  Sex: Male

DRUGS (12)
  1. CYTARABINE [Concomitant]
  2. FLUCONAZOLE [Concomitant]
  3. MYCOPHENOLATE MOFETIL [Concomitant]
  4. METRONIDAZOLE [Concomitant]
  5. ACYCLOVIR [Concomitant]
  6. EVOLTRA (CLOFARABINE) SOLUTION FOR INFUSION [Suspect]
     Indication: BONE MARROW CONDITIONING REGIMEN
     Dosage: 30 MG/M2, QDX51 1 HOUR INFUSION, INTRAVENOUS
     Route: 042
  7. EVOLTRA (CLOFARABINE) SOLUTION FOR INFUSION [Suspect]
     Indication: ACUTE MYELOID LEUKAEMIA
     Dosage: 30 MG/M2, QDX51 1 HOUR INFUSION, INTRAVENOUS
     Route: 042
  8. CYCLOSPORINE [Concomitant]
  9. LEVOFLOXACIN [Concomitant]
  10. THYMOGLOBULIN [Suspect]
     Indication: ACUTE MYELOID LEUKAEMIA
     Dosage: 7.5 MG/KG OR 4.5 MG/KG
  11. THYMOGLOBULIN [Suspect]
     Indication: BONE MARROW CONDITIONING REGIMEN
     Dosage: 7.5 MG/KG OR 4.5 MG/KG
  12. CYCLOPHOSPHAMIDE [Concomitant]

REACTIONS (9)
  - ALANINE AMINOTRANSFERASE INCREASED [None]
  - MYOCARDIAL INFARCTION [None]
  - PALMAR-PLANTAR ERYTHRODYSAESTHESIA SYNDROME [None]
  - NAUSEA [None]
  - BLOOD BILIRUBIN INCREASED [None]
  - SEPSIS [None]
  - ATRIAL FLUTTER [None]
  - ATRIAL FIBRILLATION [None]
  - ASPARTATE AMINOTRANSFERASE INCREASED [None]
